FAERS Safety Report 22302532 (Version 1)
Quarter: 2023Q2

REPORT INFORMATION
  Report Type: Other
  Country: CZ (occurrence: CZ)
  Receive Date: 20230510
  Receipt Date: 20230510
  Transmission Date: 20230722
  Serious: Yes (Other)
  Sender: FDA-Public Use
  Company Number: CZ-002147023-NVSC2023CZ104743

PATIENT
  Age: 44 Year
  Sex: Male

DRUGS (1)
  1. OMALIZUMAB [Suspect]
     Active Substance: OMALIZUMAB
     Indication: Asthma
     Dosage: UNK
     Route: 065
     Dates: start: 201212, end: 201401

REACTIONS (4)
  - Asthma [Unknown]
  - Condition aggravated [Unknown]
  - Aphthous ulcer [Unknown]
  - Dyspepsia [Unknown]
